FAERS Safety Report 8157265-2 (Version None)
Quarter: 2012Q1

REPORT INFORMATION
  Report Type: 
  Country: None (occurrence: None)
  Receive Date: 20120222
  Receipt Date: 20120210
  Transmission Date: 20120608
  Serious: Yes (Other)
  Sender: FDA-Public Use
  Company Number: BR-ROCHE-1039458

PATIENT
  Sex: Female
  Weight: 80 kg

DRUGS (5)
  1. MABTHERA [Suspect]
     Indication: RHEUMATOID ARTHRITIS
     Route: 042
     Dates: start: 20110919, end: 20111004
  2. DEPURAN [Concomitant]
  3. ALENDRONATE SODIUM [Concomitant]
  4. CORTICORTEN [Concomitant]
  5. FOLIC ACID [Concomitant]

REACTIONS (2)
  - LIGAMENT RUPTURE [None]
  - FALL [None]
